FAERS Safety Report 20474673 (Version 1)
Quarter: 2022Q1

REPORT INFORMATION
  Report Type: Spontaneous
  Country: US (occurrence: None)
  Receive Date: 20220215
  Receipt Date: 20220215
  Transmission Date: 20220423
  Serious: Yes (Disabling, Other)
  Sender: FDA-Public Use
  Company Number: 2022A065389

PATIENT
  Age: 21786 Day
  Sex: Male
  Weight: 74.4 kg

DRUGS (1)
  1. SYMBICORT [Suspect]
     Active Substance: BUDESONIDE\FORMOTEROL FUMARATE DIHYDRATE
     Dosage: UNKNOWN UNKNOWN
     Route: 055
     Dates: start: 2010

REACTIONS (14)
  - Glaucoma [Unknown]
  - Necrotising fasciitis [Recovering/Resolving]
  - Bursitis infective staphylococcal [Unknown]
  - Illness [Not Recovered/Not Resolved]
  - Dyspnoea [Not Recovered/Not Resolved]
  - Gait disturbance [Not Recovered/Not Resolved]
  - Asthenia [Not Recovered/Not Resolved]
  - Feeding disorder [Not Recovered/Not Resolved]
  - Weight decreased [Not Recovered/Not Resolved]
  - Cold sweat [Unknown]
  - Chest discomfort [Not Recovered/Not Resolved]
  - Anxiety [Unknown]
  - Inability to afford medication [Not Recovered/Not Resolved]
  - Product dose omission issue [Unknown]

NARRATIVE: CASE EVENT DATE: 20211231
